FAERS Safety Report 10038806 (Version 1)
Quarter: 2014Q1

REPORT INFORMATION
  Report Type: Report from Study
  Country: JP (occurrence: JP)
  Receive Date: 20140326
  Receipt Date: 20140326
  Transmission Date: 20141002
  Serious: Yes (Hospitalization)
  Sender: FDA-Public Use
  Company Number: JP-ACTELION-A-CH2014-96386

PATIENT
  Age: 64 Year
  Sex: Female
  Weight: 46.5 kg

DRUGS (15)
  1. TRACLEER [Suspect]
     Indication: PULMONARY ARTERIAL HYPERTENSION
     Dosage: 62.5 MG, BID
     Route: 048
     Dates: start: 20131125
  2. BERAPROST SODIUM [Concomitant]
  3. SILDENAFIL CITRATE [Concomitant]
  4. KETOPROFEN [Concomitant]
  5. PREDNISOLONE [Concomitant]
  6. LEVOTHYROXINE SODIUM [Concomitant]
  7. FUROSEMIDE [Concomitant]
  8. BISOPROLOL FUMARATE [Concomitant]
  9. FERROUS CITRATE [Concomitant]
  10. REBAMIPIDE [Concomitant]
  11. SARPOGRELATE HYDROCHLORIDE [Concomitant]
  12. URSODEOXYCHOLIC ACID [Concomitant]
  13. ISOLEUCINE W/LEUCINE/VALINE [Concomitant]
  14. RABEPRAZOLE SODIUM [Concomitant]
  15. OXYGEN [Concomitant]

REACTIONS (9)
  - Intestinal obstruction [Recovering/Resolving]
  - Pneumonia [Recovering/Resolving]
  - Hepatic function abnormal [Recovered/Resolved]
  - Oral candidiasis [Recovering/Resolving]
  - Aspartate aminotransferase increased [Recovered/Resolved]
  - Alanine aminotransferase increased [Recovered/Resolved]
  - Blood alkaline phosphatase increased [Recovered/Resolved]
  - Gamma-glutamyltransferase increased [Recovered/Resolved]
  - Blood bilirubin increased [Recovered/Resolved]
